FAERS Safety Report 14239203 (Version 1)
Quarter: 2017Q4

REPORT INFORMATION
  Report Type: Spontaneous
  Country: DE (occurrence: DE)
  Receive Date: 20171130
  Receipt Date: 20171130
  Transmission Date: 20180321
  Serious: Yes (Hospitalization, Other)
  Sender: FDA-Public Use
  Company Number: DE-ASTRAZENECA-2017SF19703

PATIENT
  Age: 70 Year
  Sex: Female

DRUGS (6)
  1. PALLADON [Suspect]
     Active Substance: HYDROMORPHONE
     Route: 065
  2. DOCITON [Concomitant]
     Active Substance: PROPRANOLOL HYDROCHLORIDE
  3. ZOPICLON STADA [Suspect]
     Active Substance: ZOPICLONE
     Route: 065
  4. SEROQUEL [Suspect]
     Active Substance: QUETIAPINE FUMARATE
     Route: 048
     Dates: start: 20160915
  5. AZILECT [Concomitant]
     Active Substance: RASAGILINE MESYLATE
  6. ELIQUIS [Concomitant]
     Active Substance: APIXABAN

REACTIONS (2)
  - Haematoma [Recovered/Resolved]
  - Fall [Recovered/Resolved]

NARRATIVE: CASE EVENT DATE: 20160915
